FAERS Safety Report 9471588 (Version 1)
Quarter: 2013Q3

REPORT INFORMATION
  Report Type: Spontaneous
  Country: GB (occurrence: None)
  Receive Date: 20130819
  Receipt Date: 20130819
  Transmission Date: 20140515
  Serious: Yes (Disabling)
  Sender: FDA-Public Use
  Company Number: ABR_01079_2013

PATIENT
  Age: 23 Year
  Sex: Male
  Weight: 51 kg

DRUGS (8)
  1. ERYTHROMYCIN ETHYLSUCCINATE (ERYTHROMYCIN ETHYLSUCCINATE) [Suspect]
     Indication: PRODUCT USED FOR UNKNOWN INDICATION
     Dosage: DF
     Dates: start: 20130723
  2. AMOXICILLIN [Concomitant]
  3. SODIUM VALPROATE [Concomitant]
  4. LACOSAMIDE [Concomitant]
  5. TEGRETOL [Concomitant]
  6. MIDAZOLAM [Concomitant]
  7. NUTRITIONAL SUPPLEMENT [Concomitant]
  8. RISPERIDONE [Concomitant]

REACTIONS (2)
  - Dysarthria [None]
  - Coordination abnormal [None]
